FAERS Safety Report 5806854-6 (Version None)
Quarter: 2008Q3

REPORT INFORMATION
  Report Type: 
  Country: None (occurrence: None)
  Receive Date: 20080711
  Receipt Date: 20080701
  Transmission Date: 20090109
  Serious: Yes (Death, Life-Threatening, Hospitalization)
  Sender: FDA-Public Use
  Company Number: JP-WYE-H03503008

PATIENT
  Sex: Male

DRUGS (6)
  1. ANCARON [Suspect]
     Indication: CONGESTIVE CARDIOMYOPATHY
     Route: 048
     Dates: start: 20080318, end: 20080330
  2. WARFARIN POTASSIUM [Suspect]
     Route: 048
     Dates: start: 20080318, end: 20080330
  3. ALOSITOL [Suspect]
     Route: 048
     Dates: start: 20080318, end: 20080330
  4. ARTIST [Suspect]
     Route: 048
     Dates: start: 20080318, end: 20080330
  5. LOSARTAN POTASSIUM [Suspect]
     Dosage: DOSE AND FREQUENCY NOT SPECIFIED
     Route: 065
  6. LASIX [Suspect]
     Route: 048
     Dates: start: 20080318, end: 20080330

REACTIONS (3)
  - CONDITION AGGRAVATED [None]
  - HEPATITIS FULMINANT [None]
  - RENAL FAILURE [None]
